FAERS Safety Report 21864708 (Version 1)
Quarter: 2023Q1

REPORT INFORMATION
  Report Type: Spontaneous
  Country: DE (occurrence: None)
  Receive Date: 20230116
  Receipt Date: 20230116
  Transmission Date: 20230418
  Serious: Yes (Other)
  Sender: FDA-Public Use
  Company Number: DE-ROCHE-3264757

PATIENT
  Sex: Female

DRUGS (5)
  1. TECENTRIQ [Suspect]
     Active Substance: ATEZOLIZUMAB
     Indication: Triple negative breast cancer
     Dosage: IN COMBINATION WITH NAB-PACLITAXEL
     Route: 065
     Dates: start: 2019, end: 2022
  2. TECENTRIQ [Suspect]
     Active Substance: ATEZOLIZUMAB
     Indication: Metastases to lung
  3. PACLITAXEL [Suspect]
     Active Substance: PACLITAXEL
     Indication: Triple negative breast cancer
     Dosage: IN COMBINATION WITH TECENTRIQ
     Route: 065
     Dates: start: 2019, end: 2022
  4. PACLITAXEL [Suspect]
     Active Substance: PACLITAXEL
     Indication: Metastases to lung
  5. TRODELVY [Concomitant]
     Active Substance: SACITUZUMAB GOVITECAN-HZIY

REACTIONS (1)
  - Breast cancer [Unknown]
